FAERS Safety Report 20131319 (Version 1)
Quarter: 2021Q4

REPORT INFORMATION
  Report Type: Spontaneous
  Country: US (occurrence: None)
  Receive Date: 20211130
  Receipt Date: 20211130
  Transmission Date: 20220303
  Serious: Yes (Other)
  Sender: FDA-Public Use
  Company Number: None

PATIENT
  Age: 65 Year
  Sex: Female

DRUGS (9)
  1. ZONISAMIDE [Suspect]
     Active Substance: ZONISAMIDE
     Indication: Essential tremor
     Dosage: FREQUENCY : DAILY;?
     Route: 048
     Dates: start: 20211126
  2. fenofibrate 145 [Concomitant]
     Dates: start: 20210827
  3. citalpram 10 [Concomitant]
     Dates: start: 20210827
  4. MONTELUKAST [Concomitant]
     Active Substance: MONTELUKAST SODIUM
     Dates: start: 20210827
  5. Armour Thyroid 2 gr [Concomitant]
     Dates: start: 20210828
  6. clonazepam 0.5 [Concomitant]
     Dates: start: 20210827
  7. cyclobenzaprine 5 [Concomitant]
     Dates: start: 20210827
  8. fluticasone50 mcg [Concomitant]
     Dates: start: 20210827
  9. Asmanex 220 [Concomitant]
     Dates: start: 20210827

REACTIONS (1)
  - Therapeutic response decreased [None]

NARRATIVE: CASE EVENT DATE: 20211127
